FAERS Safety Report 11343705 (Version 1)
Quarter: 2015Q3

REPORT INFORMATION
  Report Type: Spontaneous
  Country: US (occurrence: None)
  Receive Date: 20150804
  Receipt Date: 20150804
  Transmission Date: 20151125
  Serious: Yes (Hospitalization)
  Sender: FDA-Public Use
  Company Number: None

PATIENT
  Age: 44 Year
  Sex: Female
  Weight: 62.7 kg

DRUGS (14)
  1. ZOFRAN [Concomitant]
     Active Substance: ONDANSETRON HYDROCHLORIDE
  2. LIDOCAINE/PRILOCAINE 2.5/2.5% FONGERA [Concomitant]
     Active Substance: LIDOCAINE\PRILOCAINE
  3. FENTANYL. [Concomitant]
     Active Substance: FENTANYL
  4. ALBUTEROL. [Concomitant]
     Active Substance: ALBUTEROL
  5. WELLBUTRIN [Concomitant]
     Active Substance: BUPROPION HYDROCHLORIDE
  6. KEPPRA [Concomitant]
     Active Substance: LEVETIRACETAM
  7. LASIX [Concomitant]
     Active Substance: FUROSEMIDE
  8. MAGNESIUM [Concomitant]
     Active Substance: MAGNESIUM
  9. ATIVAN [Concomitant]
     Active Substance: LORAZEPAM
  10. FAMOTIDINE. [Concomitant]
     Active Substance: FAMOTIDINE
  11. OXYCODONE [Concomitant]
     Active Substance: OXYCODONE
  12. POTASSIUM CHLORIDE. [Concomitant]
     Active Substance: POTASSIUM CHLORIDE
  13. ALECTINIB 150 MG GENENTECH [Suspect]
     Active Substance: ALECTINIB
     Indication: NON-SMALL CELL LUNG CANCER
     Route: 048
     Dates: start: 20140520, end: 20150724
  14. DILAUDID [Concomitant]
     Active Substance: HYDROMORPHONE HYDROCHLORIDE

REACTIONS (5)
  - Cellulitis [None]
  - Malignant neoplasm progression [None]
  - Animal bite [None]
  - Hypomagnesaemia [None]
  - Hypokalaemia [None]

NARRATIVE: CASE EVENT DATE: 20150801
